FAERS Safety Report 15955028 (Version 1)
Quarter: 2019Q1

REPORT INFORMATION
  Report Type: Spontaneous
  Country: AR (occurrence: AR)
  Receive Date: 20190213
  Receipt Date: 20190213
  Transmission Date: 20190417
  Serious: Yes (Other)
  Sender: FDA-Public Use
  Company Number: AR-GLAXOSMITHKLINE-AR2019GSK024095

PATIENT
  Sex: Female

DRUGS (2)
  1. NUCALA [Suspect]
     Active Substance: MEPOLIZUMAB
     Dosage: UNK
     Route: 058
     Dates: start: 20190205
  2. NUCALA [Suspect]
     Active Substance: MEPOLIZUMAB
     Indication: ASTHMA
     Dosage: UNK
     Route: 058
     Dates: start: 20190104

REACTIONS (13)
  - Rash [Unknown]
  - Anxiety [Unknown]
  - Chest discomfort [Unknown]
  - Abdominal pain [Unknown]
  - Syncope [Unknown]
  - Abdominal discomfort [Unknown]
  - Muscle spasms [Unknown]
  - Asthmatic crisis [Unknown]
  - Malaise [Unknown]
  - Panic attack [Unknown]
  - Vertigo [Unknown]
  - Drug ineffective [Unknown]
  - Hypersensitivity [Unknown]
